FAERS Safety Report 6063974-1 (Version None)
Quarter: 2009Q1

REPORT INFORMATION
  Report Type: 
  Country: None (occurrence: None)
  Receive Date: 20090204
  Receipt Date: 20090128
  Transmission Date: 20090719
  Serious: Yes (Life-Threatening, Hospitalization, Other)
  Sender: FDA-Public Use
  Company Number: FR-AMGEN-UK273027

PATIENT
  Sex: Male
  Weight: 70 kg

DRUGS (13)
  1. ARANESP [Suspect]
     Indication: RENAL FAILURE CHRONIC
     Route: 058
     Dates: start: 20061201
  2. DIAMOX [Suspect]
     Dates: start: 20080101
  3. PRAZOSIN HCL [Concomitant]
     Route: 065
  4. IRBESARTAN [Concomitant]
     Route: 065
  5. ATENOLOL [Concomitant]
     Route: 065
  6. CALCIUM CARBONATE [Concomitant]
     Route: 065
  7. OMEPRAZOLE [Concomitant]
     Route: 065
  8. KARDEGIC [Concomitant]
     Route: 065
  9. LASILIX [Concomitant]
     Route: 065
  10. TAHOR [Concomitant]
     Route: 065
  11. ACETAMINOPHEN [Concomitant]
     Route: 065
  12. XALATAN [Concomitant]
     Route: 065
  13. ALPHAGAN [Concomitant]
     Route: 065

REACTIONS (2)
  - APLASIA PURE RED CELL [None]
  - GLAUCOMA [None]
